FAERS Safety Report 5256073-X (Version None)
Quarter: 2007Q1

REPORT INFORMATION
  Report Type: 
  Country: None (occurrence: None)
  Receive Date: 20070301
  Receipt Date: 20070215
  Transmission Date: 20070707
  Serious: Yes (Hospitalization)
  Sender: FDA-Public Use
  Company Number: 2007RR-05464

PATIENT
  Age: 61 Year
  Sex: Female
  Weight: 55 kg

DRUGS (9)
  1. CLARITHROMYCIN [Suspect]
     Indication: CAMPYLOBACTER INFECTION
     Dosage: 500 MG, BID, ORAL
     Route: 048
     Dates: start: 20060416, end: 20060422
  2. OMEPRAZOLE [Suspect]
     Indication: DUODENAL ULCER
     Dosage: 20 MG, BID, ORAL
     Route: 048
     Dates: start: 20060417, end: 20060425
  3. PROTIUM(PROTIUM) [Suspect]
     Indication: DUODENAL ULCER
     Dosage: 8 MG, Q1H, INTRAVENOUS
     Route: 042
     Dates: start: 20060414, end: 20060417
  4. ATENOLOL [Concomitant]
  5. HEPARIN [Concomitant]
  6. LACIDIPINE [Concomitant]
  7. LEVOTHYROXINE SODIUM [Concomitant]
  8. METROMIDAZOLE (METRONIDAZOLE) [Concomitant]
  9. WARFARIN SODIUM [Concomitant]

REACTIONS (1)
  - NEPHRITIS INTERSTITIAL [None]
